FAERS Safety Report 5576549-5 (Version None)
Quarter: 2007Q4

REPORT INFORMATION
  Report Type: 
  Country: None (occurrence: None)
  Receive Date: 20071228
  Receipt Date: 20071227
  Transmission Date: 20080405
  Serious: Yes (Death, Other)
  Sender: FDA-Public Use
  Company Number: D0055451A

PATIENT
  Age: 68 Year
  Sex: Male
  Weight: 95 kg

DRUGS (4)
  1. INTEGRILIN [Suspect]
     Route: 042
     Dates: start: 20071130, end: 20071201
  2. CLOPIDOGREL [Suspect]
     Dosage: 75MG UNKNOWN
     Route: 048
     Dates: start: 20071130, end: 20071201
  3. HEPARIN [Suspect]
     Route: 042
     Dates: start: 20071130, end: 20071201
  4. ASPIRIN [Suspect]
     Dosage: 100MG PER DAY
     Route: 048
     Dates: start: 20071130, end: 20071201

REACTIONS (1)
  - CEREBELLAR HAEMORRHAGE [None]
